FAERS Safety Report 6045972-7 (Version None)
Quarter: 2009Q1

REPORT INFORMATION
  Report Type: 
  Country: None (occurrence: None)
  Receive Date: 20090116
  Receipt Date: 20081231
  Transmission Date: 20090719
  Serious: Yes (Hospitalization)
  Sender: FDA-Public Use
  Company Number: 2009S1000019

PATIENT
  Age: 33 Year
  Sex: Female

DRUGS (2)
  1. LEVETIRACETAM [Suspect]
     Indication: CONVULSION
     Dosage: 500 MG; TWICE A DAY; ORAL
     Route: 048
     Dates: start: 20081101, end: 20081201
  2. TOPAMAX [Concomitant]

REACTIONS (2)
  - CONVULSION [None]
  - HEART RATE IRREGULAR [None]
